FAERS Safety Report 5067554-6 (Version None)
Quarter: 2006Q3

REPORT INFORMATION
  Report Type: 
  Country: None (occurrence: None)
  Receive Date: 20060802
  Receipt Date: 20060426
  Transmission Date: 20061208
  Serious: Yes (Hospitalization, Other)
  Sender: FDA-Public Use
  Company Number: US-BAYER-200611799BCC

PATIENT
  Age: 71 Year
  Sex: Male
  Weight: 82 kg

DRUGS (4)
  1. ALEVE (CAPLET) [Suspect]
     Indication: ARTHRALGIA
     Dosage: TOTAL DAILY DOSE: 440 MG  UNIT DOSE: 220 MG
     Route: 048
  2. HYDROCHLOROTHIAZIDE [Concomitant]
  3. CRESTOR [Concomitant]
  4. MULTI-VITAMIN [Concomitant]

REACTIONS (6)
  - ASTHENIA [None]
  - BARRETT'S OESOPHAGUS [None]
  - FEELING ABNORMAL [None]
  - GASTRIC ULCER [None]
  - HYPOTENSION [None]
  - TRANSFUSION [None]
